FAERS Safety Report 9498945 (Version 1)
Quarter: 2013Q3

REPORT INFORMATION
  Report Type: Spontaneous
  Country: US (occurrence: US)
  Receive Date: 20130904
  Receipt Date: 20130904
  Transmission Date: 20140515
  Serious: Yes (Other)
  Sender: FDA-Public Use
  Company Number: US-TEVA-429549USA

PATIENT
  Sex: Female

DRUGS (4)
  1. TRAZODONE [Suspect]
  2. BACTRIM [Concomitant]
  3. BACTROBAN [Concomitant]
  4. IBUPROFEN [Concomitant]

REACTIONS (6)
  - Loss of consciousness [Unknown]
  - Drug screen positive [Unknown]
  - Fatigue [Unknown]
  - Feeling abnormal [Unknown]
  - Drug effect increased [Unknown]
  - Incorrect dose administered [Unknown]
